FAERS Safety Report 16288070 (Version 5)
Quarter: 2019Q2

REPORT INFORMATION
  Report Type: Report from Study
  Country: AT (occurrence: AT)
  Receive Date: 20190508
  Receipt Date: 20190621
  Transmission Date: 20190711
  Serious: Yes (Hospitalization)
  Sender: FDA-Public Use
  Company Number: AT-SEATTLE GENETICS-2019SGN01431

PATIENT

DRUGS (12)
  1. ETOPOSIDE. [Suspect]
     Active Substance: ETOPOSIDE
     Dosage: 151.5 MILLIGRAM/SQ. METER
     Route: 065
     Dates: start: 20190511
  2. ETOPOSIDE. [Suspect]
     Active Substance: ETOPOSIDE
     Dosage: 149.85 MILLIGRAM/SQ. METER
     Route: 065
     Dates: start: 20190601
  3. DOXORUBICIN [Suspect]
     Active Substance: DOXORUBICIN
     Dosage: 39.96 MILLIGRAM/SQ. METER
     Route: 065
     Dates: start: 20190601
  4. ETOPOSIDE. [Suspect]
     Active Substance: ETOPOSIDE
     Indication: HODGKIN^S DISEASE
     Dosage: 1020 MILLIGRAM/SQ. METER
     Route: 065
     Dates: start: 20190420
  5. DACARBAZINE. [Suspect]
     Active Substance: DACARBAZINE
     Indication: HODGKIN^S DISEASE
     Dosage: 248.29 MILLIGRAM/SQ. METER
     Route: 065
     Dates: start: 20190421
  6. DACARBAZINE. [Suspect]
     Active Substance: DACARBAZINE
     Dosage: 247.75 MILLIGRAM/SQ. METER
     Route: 065
     Dates: start: 20190602
  7. DOXORUBICIN [Suspect]
     Active Substance: DOXORUBICIN
     Indication: HODGKIN^S DISEASE
     Dosage: 39.98 MILLIGRAM/SQ. METER
     Route: 065
     Dates: start: 20190420
  8. BRENTUXIMAB VEDOTIN-MPI [Suspect]
     Active Substance: BRENTUXIMAB VEDOTIN
     Indication: HODGKIN^S DISEASE
     Dosage: 1.57 MILLIGRAM/KILOGRAM
     Route: 065
     Dates: start: 20190419
  9. CYCLOPHOSPHAMIDE. [Suspect]
     Active Substance: CYCLOPHOSPHAMIDE
     Dosage: 124874 MILLIGRAM/SQ. METER
     Route: 065
     Dates: start: 20190601
  10. BRENTUXIMAB VEDOTIN-MPI [Suspect]
     Active Substance: BRENTUXIMAB VEDOTIN
     Dosage: 1.53 MILLIGRAM/KILOGRAM
     Route: 065
     Dates: start: 20190531
  11. DEXAMETHASONE. [Suspect]
     Active Substance: DEXAMETHASONE
     Indication: HODGKIN^S DISEASE
     Dosage: 160 MILLIGRAM
     Route: 065
     Dates: start: 20190420
  12. CYCLOPHOSPHAMIDE. [Suspect]
     Active Substance: CYCLOPHOSPHAMIDE
     Indication: HODGKIN^S DISEASE
     Dosage: 1262.48 MILLIGRAM/SQ. METER
     Route: 065
     Dates: start: 20190420

REACTIONS (6)
  - Aplasia [Recovered/Resolved]
  - C-reactive protein increased [Unknown]
  - Body temperature increased [Not Recovered/Not Resolved]
  - Pancytopenia [Unknown]
  - Dyschezia [Unknown]
  - Dizziness [Unknown]

NARRATIVE: CASE EVENT DATE: 20190428
